FAERS Safety Report 6744871-2 (Version None)
Quarter: 2010Q2

REPORT INFORMATION
  Report Type: 
  Country: None (occurrence: None)
  Receive Date: 20100527
  Receipt Date: 20100413
  Transmission Date: 20101027
  Serious: No
  Sender: FDA-Public Use
  Company Number: US-BRISTOL-MYERS SQUIBB COMPANY-15061070

PATIENT
  Age: 5 Decade
  Sex: Female

DRUGS (2)
  1. ONGLYZA [Suspect]
  2. INSULIN [Concomitant]

REACTIONS (2)
  - DIARRHOEA [None]
  - HEADACHE [None]
